APPROVED DRUG PRODUCT: ETOMIDATE
Active Ingredient: ETOMIDATE
Strength: 2MG/ML
Dosage Form/Route: INJECTABLE;INJECTION
Application: A204618 | Product #001
Applicant: AVET LIFESCIENCES LTD
Approved: Aug 13, 2014 | RLD: No | RS: No | Type: DISCN